FAERS Safety Report 7405586-0 (Version None)
Quarter: 2011Q2

REPORT INFORMATION
  Report Type: 
  Country: None (occurrence: None)
  Receive Date: 20110411
  Receipt Date: 20110328
  Transmission Date: 20111010
  Serious: Yes (Hospitalization, Other)
  Sender: FDA-Public Use
  Company Number: PHHY2011US26159

PATIENT
  Sex: Female

DRUGS (12)
  1. LISINOPRIL [Concomitant]
     Dosage: 5 MG, UNK
  2. RECLAST [Suspect]
     Indication: OSTEOPOROSIS
     Dosage: 5 MG,
     Route: 042
     Dates: start: 20090601
  3. RECLAST [Suspect]
     Dosage: 5 MG,
     Route: 042
     Dates: start: 20100820
  4. DILTIAZEM [Concomitant]
     Dosage: 300 MG, BID
  5. OMEPRAZOLE [Concomitant]
     Dosage: 20 MG, UNK
  6. COUMADIN [Concomitant]
     Dosage: 2.5 MG, UNK
  7. PRAMIPEXOLE DIHYDROCHLORIDE [Concomitant]
     Dosage: .25 MG, UNK
  8. DOCUSATE SODIUM [Concomitant]
     Dosage: 100 MG, BID
  9. CALCIUM AND ERGOCALCIFEROL [Concomitant]
  10. DIGOXIN [Concomitant]
     Dosage: 0.125 MG, UNK
  11. DONEPEZIL HCL [Concomitant]
     Dosage: 5 MG, UNK
  12. MULTI-VITAMINS [Concomitant]

REACTIONS (8)
  - PARAESTHESIA [None]
  - CRYING [None]
  - HYPOAESTHESIA [None]
  - FALL [None]
  - FEMUR FRACTURE [None]
  - PAIN IN EXTREMITY [None]
  - LOWER LIMB FRACTURE [None]
  - PAIN [None]
